FAERS Safety Report 7897923-8 (Version None)
Quarter: 2011Q4

REPORT INFORMATION
  Report Type: 
  Country: None (occurrence: None)
  Receive Date: 20111107
  Receipt Date: 20111102
  Transmission Date: 20120403
  Serious: Yes (Other)
  Sender: FDA-Public Use
  Company Number: JP-B.I. PHARMACEUTICALS,INC./RIDGEFIELD-2011-EU-00125GD

PATIENT
  Sex: Female

DRUGS (2)
  1. CARBAMAZEPINE [Suspect]
  2. PRAMIPEXOLE DIHYDROCHLORIDE [Suspect]

REACTIONS (5)
  - SUBARACHNOID HAEMORRHAGE [None]
  - PAIN IN EXTREMITY [None]
  - FALL [None]
  - SUBDURAL HAEMATOMA [None]
  - HYPERTENSION [None]
